FAERS Safety Report 8383778-4 (Version None)
Quarter: 2012Q2

REPORT INFORMATION
  Report Type: 
  Country: None (occurrence: None)
  Receive Date: 20120524
  Receipt Date: 20120305
  Transmission Date: 20120825
  Serious: Yes (Death)
  Sender: FDA-Public Use
  Company Number: US-ROCHE-1047467

PATIENT
  Sex: Female

DRUGS (7)
  1. DEPAKOTE [Concomitant]
     Indication: DEPRESSION
  2. ZELBORAF [Suspect]
     Indication: MALIGNANT MELANOMA
     Route: 048
     Dates: start: 20111001, end: 20120219
  3. BONIVA [Suspect]
     Indication: PRODUCT USED FOR UNKNOWN INDICATION
  4. FEMARA [Concomitant]
  5. DEPAKOTE [Concomitant]
     Indication: MANIA
  6. THIORIDAZINE HCL [Concomitant]
     Indication: SCHIZOPHRENIA
  7. SYNTHROID [Concomitant]
     Indication: HYPOTHYROIDISM

REACTIONS (5)
  - METASTATIC MALIGNANT MELANOMA [None]
  - FALL [None]
  - DIARRHOEA [None]
  - ASTHENIA [None]
  - OEDEMA [None]
